FAERS Safety Report 5346817-0 (Version None)
Quarter: 2007Q2

REPORT INFORMATION
  Report Type: 
  Country: None (occurrence: None)
  Receive Date: 20070604
  Receipt Date: 20070524
  Transmission Date: 20071010
  Serious: Yes (Hospitalization, Other)
  Sender: FDA-Public Use
  Company Number: 2007SP008919

PATIENT
  Age: 71 Year
  Sex: Female

DRUGS (12)
  1. PEG-INTRON [Suspect]
     Indication: HEPATITIS C
     Dosage: SEE IMAGE
     Route: 058
     Dates: start: 20070403, end: 20070424
  2. PEG-INTRON [Suspect]
     Indication: HEPATITIS C
     Dosage: SEE IMAGE
     Route: 058
     Dates: start: 20070501, end: 20070515
  3. PEG-INTRON [Suspect]
     Indication: HEPATITIS C
     Dosage: SEE IMAGE
     Route: 058
     Dates: start: 20070522
  4. REBETOL [Suspect]
     Indication: HEPATITIS C
     Dosage: SEE IMAGE
     Route: 048
     Dates: start: 20070403, end: 20070423
  5. REBETOL [Suspect]
     Indication: HEPATITIS C
     Dosage: SEE IMAGE
     Route: 048
     Dates: start: 20070424, end: 20070430
  6. REBETOL [Suspect]
     Indication: HEPATITIS C
     Dosage: SEE IMAGE
     Route: 048
     Dates: start: 20070501, end: 20070522
  7. REBETOL [Suspect]
     Indication: HEPATITIS C
     Dosage: SEE IMAGE
     Route: 048
     Dates: start: 20070523
  8. TENORMIN [Concomitant]
  9. BLOPRESS [Concomitant]
  10. NORVASC [Concomitant]
  11. URSAMIC [Concomitant]
  12. TAKEPRON [Concomitant]

REACTIONS (7)
  - COGNITIVE DISORDER [None]
  - DEMENTIA [None]
  - DEPRESSION [None]
  - FALL [None]
  - HAEMOGLOBIN DECREASED [None]
  - LOSS OF CONSCIOUSNESS [None]
  - SUICIDAL IDEATION [None]
